FAERS Safety Report 5875392-7 (Version None)
Quarter: 2008Q3

REPORT INFORMATION
  Report Type: 
  Country: None (occurrence: None)
  Receive Date: 20080904
  Receipt Date: 20080822
  Transmission Date: 20090109
  Serious: Yes (Death, Other)
  Sender: FDA-Public Use
  Company Number: 2008002105

PATIENT
  Age: 58 Year
  Sex: Male

DRUGS (1)
  1. TARCEVA [Suspect]
     Indication: PANCREATIC CARCINOMA
     Dosage: ORAL
     Route: 048
     Dates: start: 20080401

REACTIONS (4)
  - CELLULITIS [None]
  - COLITIS [None]
  - PERITONITIS [None]
  - RASH [None]
